FAERS Safety Report 26113370 (Version 1)
Quarter: 2025Q4

REPORT INFORMATION
  Report Type: Spontaneous
  Country: EU (occurrence: EU)
  Receive Date: 20251202
  Receipt Date: 20251202
  Transmission Date: 20260118
  Serious: Yes (Death)
  Sender: MYLAN
  Company Number: None

PATIENT
  Age: 12 Year
  Sex: Male
  Weight: 34.8 kg

DRUGS (3)
  1. KETOPROFEN [Suspect]
     Active Substance: KETOPROFEN
     Indication: Procedural pain
     Dosage: 35 MILLIGRAM, BID
     Dates: start: 20251030, end: 20251031
  2. IBUPROFEN [Suspect]
     Active Substance: IBUPROFEN
     Indication: Procedural pain
     Dosage: 200 MILLIGRAM
     Dates: start: 20251031, end: 20251103
  3. BACLOFEN [Concomitant]
     Active Substance: BACLOFEN
     Indication: Muscle spasticity
     Dosage: 35 MILLIGRAM, QD
     Dates: end: 20251103

REACTIONS (1)
  - Shock [Fatal]

NARRATIVE: CASE EVENT DATE: 20251103
